FAERS Safety Report 4806153-5 (Version None)
Quarter: 2005Q4

REPORT INFORMATION
  Report Type: 
  Country: None (occurrence: None)
  Receive Date: 20051019
  Receipt Date: 20051010
  Transmission Date: 20060501
  Serious: Yes (Hospitalization)
  Sender: FDA-Public Use
  Company Number: HQWYE948910OCT05

PATIENT
  Age: 49 Year
  Sex: Female

DRUGS (7)
  1. EFFEXOR XR [Suspect]
     Dosage: 225 MG, ORAL
     Route: 048
  2. NORTRIPTYLINE HCL [Suspect]
     Dosage: 175 MG, ORAL
     Route: 048
  3. GABAPENTIN [Concomitant]
  4. AMANTADINE HCL [Concomitant]
  5. COPAXONE [Concomitant]
  6. LAMOTRIGINE [Concomitant]
  7. METHYSERGIDE (METHYSERGIDE) [Concomitant]

REACTIONS (3)
  - DRUG INTERACTION [None]
  - PARANOIA [None]
  - TOXIC INDUCED ENCEPHALOPATHY [None]
